FAERS Safety Report 7406166-3 (Version None)
Quarter: 2011Q2

REPORT INFORMATION
  Report Type: 
  Country: None (occurrence: None)
  Receive Date: 20110405
  Receipt Date: 20110405
  Transmission Date: 20111010
  Serious: Yes (Other)
  Sender: FDA-Public Use
  Company Number: None

PATIENT
  Age: 55 Year
  Sex: Female
  Weight: 58.9676 kg

DRUGS (1)
  1. JINTELI 1/5 TEVA [Suspect]
     Indication: HORMONE LEVEL ABNORMAL
     Dosage: ONE TAB QD PO
     Route: 048
     Dates: start: 20110310, end: 20110330

REACTIONS (3)
  - PRODUCT SUBSTITUTION ISSUE [None]
  - RASH [None]
  - NAUSEA [None]
